FAERS Safety Report 5757797-8 (Version None)
Quarter: 2008Q2

REPORT INFORMATION
  Report Type: 
  Country: None (occurrence: None)
  Receive Date: 20080529
  Receipt Date: 20080509
  Transmission Date: 20081010
  Serious: Yes (Death)
  Sender: FDA-Public Use
  Company Number: 20085129

PATIENT
  Sex: Male
  Weight: 26.4 kg

DRUGS (9)
  1. LIORESAL [Suspect]
     Indication: MUSCLE SPASTICITY
     Dosage: DAILY, INTRATHECAL
     Dates: start: 20070601
  2. LIORESAL [Concomitant]
  3. FAMOTIDINE [Concomitant]
  4. PHENOBARBITAL TAB [Concomitant]
  5. GALANTASE [Concomitant]
  6. ENTERONON-R [Concomitant]
  7. AZULENE [Concomitant]
  8. GASMOTIN [Concomitant]
  9. GLYSENNID [Concomitant]

REACTIONS (4)
  - EXCESSIVE GRANULATION TISSUE [None]
  - FISTULA [None]
  - TRACHEAL HAEMORRHAGE [None]
  - TRACHEAL OBSTRUCTION [None]
